FAERS Safety Report 17518395 (Version 1)
Quarter: 2020Q1

REPORT INFORMATION
  Report Type: Spontaneous
  Country: ES (occurrence: ES)
  Receive Date: 20200309
  Receipt Date: 20200309
  Transmission Date: 20200409
  Serious: Yes (Other)
  Sender: FDA-Public Use
  Company Number: ES-MYLANLABS-2020M1024368

PATIENT
  Age: 69 Year
  Sex: Male

DRUGS (3)
  1. IBUPROFENO KERN PHARMA [Interacting]
     Active Substance: IBUPROFEN
     Indication: MUSCLE CONTRACTURE
     Dosage: 600 MILLIGRAM, Q8H
     Route: 048
     Dates: start: 20190629, end: 20190702
  2. VALSARTAN. [Suspect]
     Active Substance: VALSARTAN
     Indication: HYPERTENSION
     Dosage: UNK
     Route: 048
     Dates: start: 2019
  3. YURELAX [Concomitant]
     Active Substance: CYCLOBENZAPRINE HYDROCHLORIDE
     Indication: MUSCLE CONTRACTURE
     Dosage: UNK
     Route: 048
     Dates: start: 20190629

REACTIONS (2)
  - Drug interaction [Unknown]
  - Acute kidney injury [Recovered/Resolved]

NARRATIVE: CASE EVENT DATE: 20190702
